FAERS Safety Report 8818678 (Version 1)
Quarter: 2012Q4

REPORT INFORMATION
  Report Type: Spontaneous
  Country: US (occurrence: None)
  Receive Date: 20121002
  Receipt Date: 20121002
  Transmission Date: 20130627
  Serious: Yes (Other)
  Sender: FDA-Public Use
  Company Number: 2009US004187

PATIENT
  Age: 79 Year
  Sex: Female

DRUGS (2)
  1. VESICARE [Suspect]
     Indication: POLLAKIURIA
     Route: 048
     Dates: end: 20091122
  2. CALCIUM [Concomitant]

REACTIONS (4)
  - Dementia [None]
  - Memory impairment [None]
  - Thinking abnormal [None]
  - Repetitive speech [None]
